FAERS Safety Report 16095785 (Version 2)
Quarter: 2019Q2

REPORT INFORMATION
  Report Type: Spontaneous
  Country: FR (occurrence: FR)
  Receive Date: 20190320
  Receipt Date: 20190405
  Transmission Date: 20190711
  Serious: Yes (Other)
  Sender: FDA-Public Use
  Company Number: FR-JNJFOC-20190314710

PATIENT
  Age: 43 Year
  Sex: Male
  Weight: 127 kg

DRUGS (1)
  1. TREVICTA [Suspect]
     Active Substance: PALIPERIDONE PALMITATE
     Indication: PRODUCT USED FOR UNKNOWN INDICATION
     Route: 030
     Dates: start: 201706

REACTIONS (3)
  - Exercise lack of [Unknown]
  - Increased appetite [Unknown]
  - Obesity [Unknown]
